FAERS Safety Report 5444493-X (Version None)
Quarter: 2007Q3

REPORT INFORMATION
  Report Type: 
  Country: None (occurrence: None)
  Receive Date: 20070906
  Receipt Date: 20070829
  Transmission Date: 20080115
  Serious: Yes (Hospitalization)
  Sender: FDA-Public Use
  Company Number: MX-AMGEN-US240087

PATIENT
  Sex: Female

DRUGS (5)
  1. PANITUMUMAB [Suspect]
     Indication: COLORECTAL CANCER
     Route: 042
     Dates: start: 20070814, end: 20070814
  2. PANITUMUMAB [Suspect]
     Route: 042
     Dates: start: 20070705, end: 20070705
  3. OXALIPLATIN [Concomitant]
  4. 5-FU [Concomitant]
  5. LEUCOVORIN CALCIUM [Concomitant]

REACTIONS (2)
  - RASH [None]
  - SKIN EXFOLIATION [None]
